FAERS Safety Report 7335705-6 (Version None)
Quarter: 2011Q1

REPORT INFORMATION
  Report Type: 
  Country: None (occurrence: None)
  Receive Date: 20110307
  Receipt Date: 20110225
  Transmission Date: 20110831
  Serious: Yes (Other)
  Sender: FDA-Public Use
  Company Number: A0916638A

PATIENT
  Sex: Female
  Weight: 66 kg

DRUGS (3)
  1. ZINNAT [Suspect]
     Indication: BRONCHITIS
     Dosage: 500MG TWICE PER DAY
     Dates: start: 20110217, end: 20110225
  2. BUDESONIDE + FORMOTEROL [Concomitant]
     Dates: start: 20080101
  3. BRONDILAT [Concomitant]
     Dosage: 20ML PER DAY
     Dates: start: 20110217, end: 20110224

REACTIONS (2)
  - DIARRHOEA HAEMORRHAGIC [None]
  - DIARRHOEA [None]
